FAERS Safety Report 18334487 (Version 4)
Quarter: 2022Q1

REPORT INFORMATION
  Report Type: Report from Study
  Country: IL (occurrence: IL)
  Receive Date: 20201001
  Receipt Date: 20220114
  Transmission Date: 20220423
  Serious: Yes (Death, Hospitalization, Other)
  Sender: FDA-Public Use
  Company Number: IL-KOREA IPSEN PHARMA-2020-18189

PATIENT
  Age: 73 Year
  Sex: Male

DRUGS (2)
  1. LANREOTIDE ACETATE [Suspect]
     Active Substance: LANREOTIDE ACETATE
     Indication: Pancreatic neuroendocrine tumour
     Route: 058
     Dates: start: 20200812
  2. LANREOTIDE ACETATE [Suspect]
     Active Substance: LANREOTIDE ACETATE
     Route: 058

REACTIONS (5)
  - Death [Fatal]
  - Chest pain [Recovered/Resolved]
  - Rectal haemorrhage [Unknown]
  - Metastases to liver [Unknown]
  - Off label use [Unknown]

NARRATIVE: CASE EVENT DATE: 20200901
